FAERS Safety Report 18996399 (Version 1)
Quarter: 2021Q1

REPORT INFORMATION
  Report Type: Spontaneous
  Country: US (occurrence: US)
  Receive Date: 20210311
  Receipt Date: 20210311
  Transmission Date: 20210420
  Serious: No
  Sender: FDA-Public Use
  Company Number: US-AUROBINDO-AUR-APL-2020-039492

PATIENT
  Age: 79 Year
  Sex: Male
  Weight: 78.47 kg

DRUGS (2)
  1. VANCOMYCIN [Concomitant]
     Active Substance: VANCOMYCIN
     Indication: PRODUCT USED FOR UNKNOWN INDICATION
     Dosage: UNK
     Route: 065
  2. AMOXICILLIN AND CLAVULANATE POTASSIUM TABLETS USP  875 MG/125 MG [Suspect]
     Active Substance: AMOXICILLIN\CLAVULANATE POTASSIUM
     Indication: OSTEOMYELITIS
     Dosage: 1 DOSAGE FORM, DAILY (HALF TABLET IN THE MORNING AND HALF TABLET AT NIGHT)
     Route: 065
     Dates: start: 20200527

REACTIONS (1)
  - Tooth discolouration [Recovered/Resolved]

NARRATIVE: CASE EVENT DATE: 202006
